FAERS Safety Report 18061707 (Version 2)
Quarter: 2020Q3

REPORT INFORMATION
  Report Type: Spontaneous
  Country: US (occurrence: US)
  Receive Date: 20200723
  Receipt Date: 20200819
  Transmission Date: 20201103
  Serious: Yes (Hospitalization, Other)
  Sender: FDA-Public Use
  Company Number: US-GILEAD-2020-0484461

PATIENT
  Age: 69 Year
  Sex: Female

DRUGS (3)
  1. DEFIBROTIDE [Concomitant]
     Active Substance: DEFIBROTIDE (BOVINE)
  2. YESCARTA [Suspect]
     Active Substance: AXICABTAGENE CILOLEUCEL
     Indication: DIFFUSE LARGE B-CELL LYMPHOMA
     Dosage: 2 ? 10^6 CAR?T POSITIVE VIABLE T CELLS PER KG, 68 ML, IN 1 BAG
     Route: 042
     Dates: start: 20200428, end: 20200428
  3. PENTAMIDINE [Concomitant]
     Active Substance: PENTAMIDINE

REACTIONS (11)
  - Diarrhoea [Recovering/Resolving]
  - Tremor [Not Recovered/Not Resolved]
  - Neurotoxicity [Recovered/Resolved with Sequelae]
  - Cytokine release syndrome [Recovered/Resolved]
  - Cytokine release syndrome [Recovered/Resolved]
  - Neurotoxicity [Not Recovered/Not Resolved]
  - Clostridium difficile colitis [Recovering/Resolving]
  - Hypotension [Recovering/Resolving]
  - Parkinsonism [Not Recovered/Not Resolved]
  - Neurotoxicity [Recovered/Resolved]
  - Hypophagia [Recovering/Resolving]

NARRATIVE: CASE EVENT DATE: 20200429
